FAERS Safety Report 22980566 (Version 2)
Quarter: 2023Q4

REPORT INFORMATION
  Report Type: Report from Study
  Country: US (occurrence: US)
  Receive Date: 20230925
  Receipt Date: 20231025
  Transmission Date: 20240110
  Serious: Yes (Other)
  Sender: FDA-Public Use
  Company Number: US-ABBVIE-5299842

PATIENT
  Sex: Male

DRUGS (3)
  1. HUMIRA [Suspect]
     Active Substance: ADALIMUMAB
     Indication: Colitis ulcerative
     Dosage: FROM STRENGTH: 40MILLIGRAM,?END DATE TEXT: 2023?CITRATE FREE
     Route: 058
     Dates: start: 20230207
  2. HUMIRA [Suspect]
     Active Substance: ADALIMUMAB
     Indication: Colitis ulcerative
     Dosage: FROM STRENGTH: 40MILLIGRAM,?START DATE TEXT: 2023?CITRATE FREE
     Route: 058
  3. STELARA [Concomitant]
     Active Substance: USTEKINUMAB
     Indication: Product used for unknown indication

REACTIONS (9)
  - Gastrointestinal haemorrhage [Not Recovered/Not Resolved]
  - Alopecia [Not Recovered/Not Resolved]
  - Investigation abnormal [Unknown]
  - Diarrhoea [Unknown]
  - Faecal calprotectin abnormal [Not Recovered/Not Resolved]
  - Skin disorder [Unknown]
  - Skin discolouration [Unknown]
  - Inflammation [Unknown]
  - Faecal calprotectin decreased [Unknown]

NARRATIVE: CASE EVENT DATE: 20230101
